FAERS Safety Report 9147575 (Version 2)
Quarter: 2013Q1

REPORT INFORMATION
  Report Type: Report from Study
  Country: US (occurrence: US)
  Receive Date: 20130307
  Receipt Date: 20130315
  Transmission Date: 20140127
  Serious: Yes (Death)
  Sender: FDA-Public Use
  Company Number: US-ASTRAZENECA-2013SE14734

PATIENT
  Age: 48 Year
  Sex: Female
  Weight: 71 kg

DRUGS (12)
  1. NEXIUM [Suspect]
     Indication: GASTRITIS PROPHYLAXIS
     Route: 048
     Dates: start: 20110301, end: 20121028
  2. NAPROXEN [Suspect]
     Indication: OSTEOARTHRITIS
     Route: 048
     Dates: start: 20110301, end: 20121028
  3. NAPROXEN [Suspect]
     Indication: RHEUMATOID ARTHRITIS
     Route: 048
     Dates: start: 20110301, end: 20121028
  4. NEURONTIN [Concomitant]
     Dates: start: 20091029
  5. ATENOLOL [Concomitant]
     Dates: start: 201110
  6. SYNTHROID [Concomitant]
     Dates: start: 20101216
  7. LISINOPRIL [Concomitant]
     Dates: start: 20110301
  8. ELAVIL [Concomitant]
     Dates: start: 20110705
  9. ZOCOR [Concomitant]
     Dates: start: 20110823
  10. SYMBICORT [Concomitant]
     Dates: start: 20110823
  11. KLONIPIN [Concomitant]
     Dates: start: 20120821
  12. PERCOCET [Concomitant]
     Dates: start: 20120821

REACTIONS (1)
  - Arteriosclerosis coronary artery [Fatal]
